FAERS Safety Report 7706672-8 (Version None)
Quarter: 2011Q3

REPORT INFORMATION
  Report Type: 
  Country: None (occurrence: None)
  Receive Date: 20110824
  Receipt Date: 20110609
  Transmission Date: 20111222
  Serious: No
  Sender: FDA-Public Use
  Company Number: US-GLAXOSMITHKLINE-A0930943A

PATIENT
  Age: 72 Year
  Sex: Female

DRUGS (13)
  1. CYMBALTA [Concomitant]
  2. CARDIZEM CD [Concomitant]
  3. IMDUR [Concomitant]
  4. FOLIC ACID [Concomitant]
  5. ACYCLOVIR [Concomitant]
  6. ARZERRA [Suspect]
     Indication: CHRONIC LYMPHOCYTIC LEUKAEMIA
     Route: 042
     Dates: start: 20100401, end: 20101130
  7. CHOLESTYRAMINE [Concomitant]
  8. SYNTHROID [Concomitant]
  9. ZYRTEC [Concomitant]
  10. LIPITOR [Concomitant]
  11. METHOTREXATE [Concomitant]
  12. ZETIA [Concomitant]
  13. VITAMIN D [Concomitant]

REACTIONS (4)
  - DIARRHOEA [None]
  - WEIGHT DECREASED [None]
  - VOMITING [None]
  - BRONCHITIS [None]
